FAERS Safety Report 8132423-1 (Version None)
Quarter: 2012Q1

REPORT INFORMATION
  Report Type: 
  Country: None (occurrence: None)
  Receive Date: 20120208
  Receipt Date: 20120203
  Transmission Date: 20120608
  Serious: Yes (Death)
  Sender: FDA-Public Use
  Company Number: 2012SP006475

PATIENT
  Sex: Male

DRUGS (2)
  1. ORGARAN [Suspect]
     Indication: PROPHYLAXIS
  2. ORGARAN [Suspect]
     Indication: HEPARIN-INDUCED THROMBOCYTOPENIA

REACTIONS (1)
  - DEATH [None]
